FAERS Safety Report 23785049 (Version 1)
Quarter: 2024Q2

REPORT INFORMATION
  Report Type: Spontaneous
  Country: US (occurrence: US)
  Receive Date: 20240425
  Receipt Date: 20240425
  Transmission Date: 20240716
  Serious: Yes (Hospitalization, Disabling, Other)
  Sender: FDA-Public Use
  Company Number: US-Amarin Pharma  Inc-2024AMR000181

PATIENT
  Age: 70 Year
  Sex: Female

DRUGS (5)
  1. VASCEPA [Suspect]
     Active Substance: ICOSAPENT ETHYL
     Indication: Blood triglycerides
  2. MAGNESIUM [Concomitant]
     Active Substance: MAGNESIUM
     Indication: Product used for unknown indication
  3. AMLODIPINE [Concomitant]
     Active Substance: AMLODIPINE BESYLATE
     Indication: Product used for unknown indication
  4. METOPROLOL [Concomitant]
     Active Substance: METOPROLOL
     Indication: Product used for unknown indication
  5. ROSUVASTATIN [Concomitant]
     Active Substance: ROSUVASTATIN
     Indication: Product used for unknown indication

REACTIONS (14)
  - Hip surgery [Unknown]
  - Hip arthroplasty [Unknown]
  - Femur fracture [Unknown]
  - Internal haemorrhage [Unknown]
  - COVID-19 [Unknown]
  - Gait inability [Not Recovered/Not Resolved]
  - Colonoscopy [Unknown]
  - Endoscopy [Unknown]
  - Alopecia [Unknown]
  - Blood iron decreased [Unknown]
  - Blood triglycerides increased [Unknown]
  - Pain [Not Recovered/Not Resolved]
  - Poor quality product administered [Unknown]
  - Product physical issue [Unknown]

NARRATIVE: CASE EVENT DATE: 20200301
